FAERS Safety Report 14648010 (Version 5)
Quarter: 2019Q3

REPORT INFORMATION
  Report Type: Spontaneous
  Country: DE (occurrence: DE)
  Receive Date: 20180316
  Receipt Date: 20190821
  Transmission Date: 20191004
  Serious: Yes (Hospitalization, Other)
  Sender: FDA-Public Use
  Company Number: DE-AUROBINDO-AUR-APL-2018-013789

PATIENT

DRUGS (8)
  1. TAZOBACTAM [Suspect]
     Active Substance: TAZOBACTAM
     Indication: UROSEPSIS
     Dosage: 4.5 GRAM 1 PER DAY
     Route: 065
     Dates: start: 20180206, end: 20180211
  2. TAZOBACTAM [Suspect]
     Active Substance: TAZOBACTAM
     Dosage: UNK
     Route: 065
     Dates: start: 20180211, end: 20180211
  3. MIDOSTAURIN [Suspect]
     Active Substance: MIDOSTAURIN
     Dosage: UNK
     Route: 048
     Dates: start: 20180308
  4. PANTOPRAZOLE [Suspect]
     Active Substance: PANTOPRAZOLE
     Dosage: 80 MG, BID
     Route: 048
     Dates: start: 20180209, end: 20180212
  5. TAZOBACTAM [Suspect]
     Active Substance: TAZOBACTAM
     Dosage: 4.5 GRAM, TID
     Route: 065
     Dates: start: 20180206, end: 20180211
  6. PANTOPRAZOLE [Suspect]
     Active Substance: PANTOPRAZOLE
     Dosage: UNK
     Route: 048
     Dates: start: 20180212
  7. PANTOPRAZOLE [Suspect]
     Active Substance: PANTOPRAZOLE
     Indication: GASTRITIS
     Dosage: 80 MILLIGRAM, BID
     Route: 048
     Dates: start: 20180208, end: 20180212
  8. MIDOSTAURIN [Suspect]
     Active Substance: MIDOSTAURIN
     Indication: ACUTE MYELOID LEUKAEMIA
     Dosage: 100 MG, UNK
     Route: 048
     Dates: start: 20180110, end: 20180111

REACTIONS (2)
  - Urosepsis [Recovered/Resolved]
  - Transaminases increased [Recovered/Resolved]

NARRATIVE: CASE EVENT DATE: 20180206
